FAERS Safety Report 19686513 (Version 5)
Quarter: 2023Q1

REPORT INFORMATION
  Report Type: Spontaneous
  Country: FR (occurrence: FR)
  Receive Date: 20210811
  Receipt Date: 20230216
  Transmission Date: 20230418
  Serious: Yes (Hospitalization, Other)
  Sender: FDA-Public Use
  Company Number: None

PATIENT
  Age: 61 Year
  Sex: Male
  Weight: 49 kg

DRUGS (45)
  1. PEMBROLIZUMAB [Suspect]
     Active Substance: PEMBROLIZUMAB
     Indication: Lung adenocarcinoma stage IV
     Dosage: 200 MILLIGRAM, CYCLICAL, CURE 3; POWDER FOR SOLUTION FOR INFUSION
     Route: 042
     Dates: start: 20210625
  2. PEMBROLIZUMAB [Suspect]
     Active Substance: PEMBROLIZUMAB
     Dosage: 200 MILLIGRAM, CYCLICAL, CURE 2; POWDER FOR SOLUTION FOR INFUSION
     Route: 042
     Dates: start: 20210430
  3. PEMBROLIZUMAB [Suspect]
     Active Substance: PEMBROLIZUMAB
     Dosage: 200 MILLIGRAM, CYCLICAL, CURE 1; POWDER FOR SOLUTION FOR INFUSION
     Route: 042
     Dates: start: 20210409
  4. PEMBROLIZUMAB [Suspect]
     Active Substance: PEMBROLIZUMAB
     Dosage: UNK, C4
     Route: 042
     Dates: start: 20210723
  5. RIFATER [Suspect]
     Active Substance: ISONIAZID\PYRAZINAMIDE\RIFAMPIN
     Indication: Tuberculosis
     Dosage: 4 DOSAGE FORM, QD
     Dates: start: 20210420, end: 20210515
  6. RIFATER [Suspect]
     Active Substance: ISONIAZID\PYRAZINAMIDE\RIFAMPIN
     Dosage: 4 DOSAGE FORM, QD
     Dates: start: 20210630, end: 20210715
  7. ALIMTA [Suspect]
     Active Substance: PEMETREXED DISODIUM
     Indication: Lung adenocarcinoma stage IV
     Dosage: 700 MILLIGRAM, CYCLICAL, CURE 1, POWDER FOR SOLUTION TO DILUTE FOR  INFUSION
     Route: 042
     Dates: start: 20210409
  8. ALIMTA [Suspect]
     Active Substance: PEMETREXED DISODIUM
     Dosage: 700 MILLIGRAM, CYCLICAL, CURE 3; POWDER FOR SOLUTION TO DILUTE FOR INFUSION
     Route: 042
     Dates: start: 20210625
  9. ALIMTA [Suspect]
     Active Substance: PEMETREXED DISODIUM
     Dosage: 550 MILLIGRAM, CYCLICAL, CURE 2; POWDER FOR SOLUTION TO DILUTE FOR  INFUSION
     Route: 042
     Dates: start: 20210430
  10. ALIMTA [Suspect]
     Active Substance: PEMETREXED DISODIUM
     Dosage: UNK
     Route: 042
     Dates: start: 20210723
  11. ALIMTA [Suspect]
     Active Substance: PEMETREXED DISODIUM
     Route: 042
     Dates: start: 20210409
  12. ALIMTA [Suspect]
     Active Substance: PEMETREXED DISODIUM
     Route: 042
     Dates: start: 20210430
  13. ALIMTA [Suspect]
     Active Substance: PEMETREXED DISODIUM
     Route: 042
     Dates: start: 20210625
  14. CARBOPLATIN [Suspect]
     Active Substance: CARBOPLATIN
     Indication: Lung adenocarcinoma stage IV
     Dosage: 510 MILLIGRAM, CYCLICAL, CURE 2
     Route: 042
     Dates: start: 20210430
  15. CARBOPLATIN [Suspect]
     Active Substance: CARBOPLATIN
     Dosage: 530 MILLIGRAM, CYCLICAL, CURE 1
     Route: 042
     Dates: start: 20210409
  16. CARBOPLATIN [Suspect]
     Active Substance: CARBOPLATIN
     Dosage: 580 MILLIGRAM, CYCLICAL, CURE 3
     Route: 042
     Dates: start: 20210625
  17. CARBOPLATIN [Suspect]
     Active Substance: CARBOPLATIN
     Dosage: UNK
     Route: 042
     Dates: start: 20210723
  18. CARBOPLATIN [Suspect]
     Active Substance: CARBOPLATIN
     Dosage: UNK
     Route: 042
     Dates: start: 20210409
  19. CARBOPLATIN [Suspect]
     Active Substance: CARBOPLATIN
     Dosage: UNK
     Route: 042
     Dates: start: 20210430
  20. CARBOPLATIN [Suspect]
     Active Substance: CARBOPLATIN
     Dosage: UNK
     Route: 042
     Dates: start: 20210625
  21. ISONIAZID [Suspect]
     Active Substance: ISONIAZID
     Indication: Tuberculosis
     Dosage: UNK
     Route: 048
     Dates: start: 20210808, end: 20210810
  22. ISONIAZID [Suspect]
     Active Substance: ISONIAZID
     Dosage: 2 MILLIGRAM/KILOGRAM
     Route: 048
     Dates: start: 20210702, end: 20210712
  23. ISONIAZID [Suspect]
     Active Substance: ISONIAZID
     Dosage: 2 MILLIGRAM/KILOGRAM
     Route: 048
     Dates: start: 20210727, end: 20210805
  24. ISONIAZID [Suspect]
     Active Substance: ISONIAZID
     Dosage: 5 MILLIGRAM/KILOGRAM
     Route: 048
     Dates: start: 20210420, end: 20210514
  25. ALBUTEROL [Concomitant]
     Active Substance: ALBUTEROL
     Dosage: UNK
  26. VITAMIN B6 [Concomitant]
     Active Substance: PYRIDOXINE HYDROCHLORIDE
     Dosage: UNK
  27. TIMOLOL MALEATE [Concomitant]
     Active Substance: TIMOLOL MALEATE
     Dosage: UNK
  28. ONDANSETRON [Concomitant]
     Active Substance: ONDANSETRON
     Dosage: UNK
  29. METFORMIN [Concomitant]
     Active Substance: METFORMIN HYDROCHLORIDE
     Dosage: UNK
  30. MODERNA COVID-19 VACCINE [Concomitant]
     Active Substance: ELASOMERAN
     Dosage: UNK; STRENGTH: 0.20 MG/ML
  31. OXYCODONE HYDROCHLORIDE [Concomitant]
     Active Substance: OXYCODONE HYDROCHLORIDE
     Dosage: UNK
  32. ETHAMBUTOL HYDROCHLORIDE [Concomitant]
     Active Substance: ETHAMBUTOL HYDROCHLORIDE
     Indication: Tuberculosis
     Dosage: 500 MILLIGRAM, QD
     Dates: start: 20210420, end: 20210515
  33. OXYCONTIN [Concomitant]
     Active Substance: OXYCODONE HYDROCHLORIDE
     Dosage: UNK
  34. ACETAMINOPHEN [Concomitant]
     Active Substance: ACETAMINOPHEN
     Dosage: UNK
  35. POLYETHYLENE GLYCOL 3350\POTASSIUM CHLORIDE\SODIUM BICARBONATE\SODIUM [Concomitant]
     Active Substance: POLYETHYLENE GLYCOL 3350\POTASSIUM CHLORIDE\SODIUM BICARBONATE\SODIUM CHLORIDE
  36. ATORVASTATIN [Concomitant]
     Active Substance: ATORVASTATIN
     Dosage: UNK
  37. ETHAMBUTOL HYDROCHLORIDE [Concomitant]
     Active Substance: ETHAMBUTOL HYDROCHLORIDE
     Indication: Tuberculosis
     Dosage: UNK
     Route: 048
     Dates: start: 20210420, end: 20210515
  38. RIFAMPIN [Concomitant]
     Active Substance: RIFAMPIN
     Indication: Tuberculosis
     Dosage: UNK
     Route: 048
     Dates: start: 20210630, end: 20210712
  39. RIFAMPIN [Concomitant]
     Active Substance: RIFAMPIN
     Dosage: UNK
     Route: 048
     Dates: start: 20210420, end: 20210515
  40. LEVOFLOXACIN [Concomitant]
     Active Substance: LEVOFLOXACIN
     Indication: Tuberculosis
     Dosage: UNK
     Route: 048
     Dates: start: 20210727, end: 20210808
  41. LEVOFLOXACIN [Concomitant]
     Active Substance: LEVOFLOXACIN
     Dosage: UNK
     Route: 048
     Dates: start: 20210630, end: 20210712
  42. LEVOFLOXACIN [Concomitant]
     Active Substance: LEVOFLOXACIN
     Dosage: UNK
     Route: 048
     Dates: start: 20210812
  43. BEDAQUILINE [Concomitant]
     Active Substance: BEDAQUILINE
     Indication: Lung adenocarcinoma stage IV
     Dosage: UNK
     Route: 048
     Dates: start: 20210812
  44. BEDAQUILINE [Concomitant]
     Active Substance: BEDAQUILINE
     Dosage: UNK
     Route: 048
     Dates: start: 20210727, end: 20210805
  45. PYRAZINAMIDE [Concomitant]
     Active Substance: PYRAZINAMIDE
     Indication: Tuberculosis
     Dosage: UNK
     Route: 048
     Dates: start: 20210420, end: 20210515

REACTIONS (2)
  - Mixed liver injury [Recovering/Resolving]
  - Haemophagocytic lymphohistiocytosis [Recovered/Resolved]

NARRATIVE: CASE EVENT DATE: 20210514
